FAERS Safety Report 5255350-6 (Version None)
Quarter: 2007Q1

REPORT INFORMATION
  Report Type: 
  Country: None (occurrence: None)
  Receive Date: 20070228
  Receipt Date: 20061026
  Transmission Date: 20070707
  Serious: Yes (Hospitalization)
  Sender: FDA-Public Use
  Company Number: DSA_29393_2007

PATIENT
  Age: 73 Year
  Sex: Female

DRUGS (3)
  1. BI-TILDIEM [Suspect]
     Dosage: DF PO
     Route: 048
     Dates: end: 20060905
  2. COTAREG [Suspect]
     Dosage: DF PO
     Route: 048
     Dates: end: 20060905
  3. DEPAKENE [Concomitant]

REACTIONS (8)
  - ATROPHY [None]
  - BLOOD CREATINE PHOSPHOKINASE INCREASED [None]
  - ENCEPHALOPATHY [None]
  - EPILEPSY [None]
  - HYPONATRAEMIA [None]
  - HYPOTENSION [None]
  - NERVOUS SYSTEM DISORDER [None]
  - NUCLEAR MAGNETIC RESONANCE IMAGING ABNORMAL [None]
